FAERS Safety Report 10076017 (Version 13)
Quarter: 2015Q3

REPORT INFORMATION
  Report Type: Report from Study
  Country: US (occurrence: US)
  Receive Date: 20140414
  Receipt Date: 20150904
  Transmission Date: 20151125
  Serious: Yes (Hospitalization, Congenital Anomaly, Other)
  Sender: FDA-Public Use
  Company Number: US-ALEXION PHARMACEUTICALS INC.-A201401178

PATIENT

DRUGS (1)
  1. SOLIRIS [Suspect]
     Active Substance: ECULIZUMAB
     Indication: HAEMOLYTIC URAEMIC SYNDROME
     Dosage: 300 MG, Q2W
     Route: 042
     Dates: start: 20140325

REACTIONS (18)
  - Pneumonia [Not Recovered/Not Resolved]
  - Sinusitis [Not Recovered/Not Resolved]
  - Endotracheal intubation [Not Recovered/Not Resolved]
  - Gastroenteritis [Not Recovered/Not Resolved]
  - Fatigue [Not Recovered/Not Resolved]
  - Gastrostomy [Not Recovered/Not Resolved]
  - Pneumonia aspiration [Recovered/Resolved]
  - Vomiting [Unknown]
  - Somnolence [None]
  - Malaise [Unknown]
  - Unevaluable event [Unknown]
  - Cough [Not Recovered/Not Resolved]
  - Blood lactate dehydrogenase increased [None]
  - Platelet count decreased [None]
  - Haemoglobin decreased [None]
  - Pancreatitis [Not Recovered/Not Resolved]
  - Aspiration [Unknown]
  - Nasopharyngitis [Recovering/Resolving]

NARRATIVE: CASE EVENT DATE: 2014
